FAERS Safety Report 20688283 (Version 1)
Quarter: 2022Q2

REPORT INFORMATION
  Report Type: Other
  Country: CN (occurrence: None)
  Receive Date: 20220408
  Receipt Date: 20220408
  Transmission Date: 20220721
  Serious: Yes (Death)
  Sender: FDA-Public Use
  Company Number: CN-ROCHE-2721406

PATIENT
  Age: 83 Year
  Sex: Male

DRUGS (6)
  1. TOCILIZUMAB [Suspect]
     Active Substance: TOCILIZUMAB
     Indication: COVID-19
     Dosage: ONCE
     Route: 042
     Dates: start: 20200302
  2. TOCILIZUMAB [Suspect]
     Active Substance: TOCILIZUMAB
     Indication: Cytokine storm
  3. UMIFENOVIR [Concomitant]
     Active Substance: UMIFENOVIR
     Route: 048
     Dates: start: 202002, end: 20200302
  4. MOXIFLOXACIN [Concomitant]
     Active Substance: MOXIFLOXACIN
     Indication: Infection
     Route: 048
     Dates: start: 202002, end: 20200303
  5. METHYLPREDNISOLONE [Concomitant]
     Active Substance: METHYLPREDNISOLONE
     Indication: Dyspnoea
     Route: 042
     Dates: start: 202002, end: 20200303
  6. METHYLPREDNISOLONE [Concomitant]
     Active Substance: METHYLPREDNISOLONE
     Indication: Respiratory failure

REACTIONS (3)
  - Cardiac arrest [Fatal]
  - COVID-19 [Fatal]
  - Off label use [Fatal]

NARRATIVE: CASE EVENT DATE: 20200307
